FAERS Safety Report 5123175-8 (Version None)
Quarter: 2006Q4

REPORT INFORMATION
  Report Type: 
  Country: None (occurrence: None)
  Receive Date: 20061005
  Receipt Date: 20060928
  Transmission Date: 20070319
  Serious: Yes (Other)
  Sender: FDA-Public Use
  Company Number: 2006-05150

PATIENT
  Age: 62 Year
  Sex: Female

DRUGS (2)
  1. METHYLPREDNISOLONE 4MG TAB [Suspect]
     Indication: HISTIOCYTOSIS HAEMATOPHAGIC
     Dosage: 1 MG/KG,  DAILY X 5 DAYS, ORAL
     Route: 048
  2. IMMUNGLOBULIN ^ALPHA^ (IMMUNOGLOBULIN HUMAN NORMAL) [Suspect]
     Dosage: 20 G, DAILY X 3 DAYS, INTRAVENOUS
     Route: 042

REACTIONS (5)
  - ARTERIAL THROMBOSIS [None]
  - CEREBRAL ARTERY THROMBOSIS [None]
  - CEREBRAL INFARCTION [None]
  - HEMIPLEGIA [None]
  - VENOUS THROMBOSIS [None]
